FAERS Safety Report 4938494-5 (Version None)
Quarter: 2006Q1

REPORT INFORMATION
  Report Type: 
  Country: None (occurrence: None)
  Receive Date: 20060309
  Receipt Date: 20060228
  Transmission Date: 20060701
  Serious: Yes (Other)
  Sender: FDA-Public Use
  Company Number: PHBS2006JP03390

PATIENT

DRUGS (4)
  1. VOLTAREN [Suspect]
     Dosage: 10 PATCHES/DAY
     Route: 062
  2. OSTELUC [Concomitant]
     Route: 048
  3. RINLAXER [Concomitant]
     Route: 048
  4. IRSOGLADINE MALEATE [Concomitant]
     Route: 048

REACTIONS (1)
  - LOSS OF CONSCIOUSNESS [None]
